FAERS Safety Report 11393089 (Version 1)
Quarter: 2015Q3

REPORT INFORMATION
  Report Type: Spontaneous
  Country: US (occurrence: US)
  Receive Date: 20150818
  Receipt Date: 20150818
  Transmission Date: 20151125
  Serious: Yes (Hospitalization, Other)
  Sender: FDA-Public Use
  Company Number: US-GLAXOSMITHKLINE-US2015GSK117819

PATIENT
  Age: 37 Year
  Sex: Male

DRUGS (2)
  1. HALOPERIDOL. [Suspect]
     Active Substance: HALOPERIDOL
     Indication: ABNORMAL BEHAVIOUR
     Dosage: UNK
     Route: 065
  2. QUETIAPINE [Suspect]
     Active Substance: QUETIAPINE
     Indication: AGITATION
     Dosage: UNK
     Route: 065

REACTIONS (8)
  - Blood creatine phosphokinase increased [Unknown]
  - White matter lesion [Unknown]
  - Cerebral disorder [Unknown]
  - Neuroleptic malignant syndrome [Unknown]
  - Muscle rigidity [Unknown]
  - Blood creatinine increased [Unknown]
  - Pyrexia [Unknown]
  - Mental impairment [Recovered/Resolved]
